FAERS Safety Report 5123971-7 (Version None)
Quarter: 2006Q3

REPORT INFORMATION
  Report Type: 
  Country: None (occurrence: None)
  Receive Date: 20060811
  Receipt Date: 20060630
  Transmission Date: 20061208
  Serious: No
  Sender: FDA-Public Use
  Company Number: S06-USA-02511-01

PATIENT
  Age: 85 Year
  Sex: Female

DRUGS (7)
  1. NAMENDA [Suspect]
     Indication: GLAUCOMA
     Dosage: 10 MG QD PO
     Route: 048
     Dates: start: 20060101, end: 20060201
  2. NAMENDA [Suspect]
     Indication: MACULAR DEGENERATION
     Dosage: 10 MG QD PO
     Route: 048
     Dates: start: 20060101, end: 20060201
  3. NAMENDA [Suspect]
     Indication: GLAUCOMA
     Dosage: 10 MG QD PO
     Route: 048
     Dates: start: 20060620
  4. NAMENDA [Suspect]
     Indication: MACULAR DEGENERATION
     Dosage: 10 MG QD PO
     Route: 048
     Dates: start: 20060620
  5. LISINOPRIL [Concomitant]
  6. SYNTHROID [Concomitant]
  7. LANOXIN [Concomitant]

REACTIONS (1)
  - AMNESIA [None]
